FAERS Safety Report 9303658 (Version 1)
Quarter: 2013Q2

REPORT INFORMATION
  Report Type: Spontaneous
  Country: US (occurrence: None)
  Receive Date: 20130521
  Receipt Date: 20130521
  Transmission Date: 20140414
  Serious: No
  Sender: FDA-Public Use
  Company Number: None

PATIENT
  Age: 50 Year
  Sex: Female

DRUGS (1)
  1. ENBREL SURECLICK [Suspect]
     Route: 058
     Dates: start: 20130206

REACTIONS (3)
  - Nausea [None]
  - Confusional state [None]
  - Rheumatoid arthritis [None]
